FAERS Safety Report 8984984 (Version 4)
Quarter: 2013Q1

REPORT INFORMATION
  Report Type: Spontaneous
  Country: FR (occurrence: FR)
  Receive Date: 20121226
  Receipt Date: 20130318
  Transmission Date: 20140127
  Serious: Yes (Death, Hospitalization, Other)
  Sender: FDA-Public Use
  Company Number: FR-AMGEN-FRASP2012083059

PATIENT
  Age: 44 Year
  Sex: Male

DRUGS (3)
  1. ENBREL [Suspect]
     Indication: ANKYLOSING SPONDYLITIS
     Dosage: 50 MG, WEEKLY
     Route: 058
  2. VAXIGRIP [Suspect]
     Indication: INFLUENZA IMMUNISATION
     Dosage: UNK
     Dates: start: 20121124
  3. VOLTARENE                          /00372302/ [Suspect]
     Indication: HAEMORRHOIDS
     Dosage: 50 MG, 3X/DAY
     Route: 048
     Dates: start: 20121129

REACTIONS (28)
  - Multi-organ failure [Fatal]
  - Shock [Fatal]
  - Hypotension [Fatal]
  - Lactic acidosis [Unknown]
  - Circulatory collapse [Unknown]
  - Tachypnoea [Unknown]
  - Tachycardia [Unknown]
  - Atrial fibrillation [Unknown]
  - Mitral valve incompetence [Unknown]
  - Pericardial effusion [Unknown]
  - Hepatomegaly [Unknown]
  - Splenomegaly [Unknown]
  - Gallbladder oedema [Unknown]
  - Blood creatinine increased [Unknown]
  - Pyrexia [Unknown]
  - Haemorrhoids [Unknown]
  - Abdominal pain upper [Unknown]
  - Vomiting [Unknown]
  - Anuria [Unknown]
  - Cough [Unknown]
  - Blood bilirubin increased [Unknown]
  - Erythema [Unknown]
  - Septic shock [Fatal]
  - Influenza [Unknown]
  - Infection [Unknown]
  - Psoriasis [Unknown]
  - Aspartate aminotransferase increased [Unknown]
  - Alanine aminotransferase increased [Unknown]
